FAERS Safety Report 26198964 (Version 1)
Quarter: 2025Q4

REPORT INFORMATION
  Report Type: Spontaneous
  Country: US (occurrence: US)
  Receive Date: 20251225
  Receipt Date: 20251225
  Transmission Date: 20260117
  Serious: Yes (Life-Threatening, Hospitalization, Other)
  Sender: AMGEN
  Company Number: US-AMGEN-USASP2025252787

PATIENT
  Age: 73 Year
  Sex: Female

DRUGS (2)
  1. ADALIMUMAB [Suspect]
     Active Substance: ADALIMUMAB
     Indication: Rheumatoid arthritis
     Dosage: UNK, QWK
     Route: 065
  2. METHOTREXATE [Concomitant]
     Active Substance: METHOTREXATE

REACTIONS (7)
  - Respiratory failure [Recovering/Resolving]
  - Gastrointestinal haemorrhage [Unknown]
  - Intestinal perforation [Unknown]
  - Pneumonitis [Unknown]
  - Septic shock [Recovered/Resolved]
  - Pulmonary embolism [Unknown]
  - Histoplasmosis [Unknown]
